FAERS Safety Report 21358803 (Version 7)
Quarter: 2022Q4

REPORT INFORMATION
  Report Type: Spontaneous
  Country: US (occurrence: US)
  Receive Date: 20220921
  Receipt Date: 20221104
  Transmission Date: 20230113
  Serious: No
  Sender: FDA-Public Use
  Company Number: US-PFIZER INC-PV202200053090

PATIENT
  Age: 14 Year
  Sex: Male
  Weight: 68.04 kg

DRUGS (2)
  1. GENOTROPIN [Suspect]
     Active Substance: SOMATROPIN
     Indication: Growth hormone deficiency
     Dosage: 2.8 MG, SIX DAYS PER WEEK
  2. GENOTROPIN [Suspect]
     Active Substance: SOMATROPIN
     Dosage: 3.6 MG, SIX DAYS A WEEK
     Dates: start: 202201

REACTIONS (5)
  - Device issue [Unknown]
  - Device mechanical issue [Unknown]
  - Poor quality device used [Unknown]
  - Device breakage [Recovered/Resolved]
  - Drug dose omission by device [Recovered/Resolved]

NARRATIVE: CASE EVENT DATE: 20220101
